FAERS Safety Report 5788127-3 (Version None)
Quarter: 2008Q2

REPORT INFORMATION
  Report Type: 
  Country: None (occurrence: None)
  Receive Date: 20080625
  Receipt Date: 20080604
  Transmission Date: 20081010
  Serious: No
  Sender: FDA-Public Use
  Company Number: US-BOEHRINGER INGELHEIM GMBH, GERMANY-2008-BP-08741BP

PATIENT
  Age: 64 Year
  Sex: Female

DRUGS (6)
  1. MICARDIS HCT [Suspect]
     Indication: HYPERTENSION
     Route: 048
     Dates: start: 20050221, end: 20080501
  2. SINGULAIR [Concomitant]
  3. SYNTHROID [Concomitant]
  4. LYRICA [Concomitant]
  5. NOHIST [Concomitant]
  6. HORMONE REPLACEMENTS [Concomitant]

REACTIONS (4)
  - COUGH [None]
  - LUNG DISORDER [None]
  - PALPITATIONS [None]
  - RHINORRHOEA [None]
